FAERS Safety Report 22122595 (Version 2)
Quarter: 2023Q1

REPORT INFORMATION
  Report Type: Report from Study
  Country: US (occurrence: US)
  Receive Date: 20230321
  Receipt Date: 20230324
  Transmission Date: 20230418
  Serious: Yes (Other)
  Sender: FDA-Public Use
  Company Number: US-JNJFOC-20230342487

PATIENT
  Age: 6 Decade
  Sex: Female

DRUGS (19)
  1. SPRAVATO [Suspect]
     Active Substance: ESKETAMINE
     Indication: Depression
     Dosage: 56 MG, 1 TOTAL DOSES
     Dates: start: 20200504, end: 20200504
  2. SPRAVATO [Suspect]
     Active Substance: ESKETAMINE
     Dosage: 84 MG, 1 TOTAL DOSES
     Dates: start: 20200508, end: 20200508
  3. SPRAVATO [Suspect]
     Active Substance: ESKETAMINE
     Dosage: 56 MG, 12 TOTAL DOSES
     Dates: start: 20200515, end: 20200730
  4. SPRAVATO [Suspect]
     Active Substance: ESKETAMINE
     Dosage: 84 MG, 1 TOTAL DOSES
     Dates: start: 20200813, end: 20200813
  5. SPRAVATO [Suspect]
     Active Substance: ESKETAMINE
     Dosage: 56 MG, 3 TOTAL DOSES
     Dates: start: 20200827, end: 20200929
  6. SPRAVATO [Suspect]
     Active Substance: ESKETAMINE
     Dosage: 84 MG, 38 TOTAL DOSES
     Dates: start: 20201006, end: 20210719
  7. SPRAVATO [Suspect]
     Active Substance: ESKETAMINE
     Dosage: 56 MG, 3 TOTAL DOSES
     Dates: start: 20210726, end: 20210810
  8. SPRAVATO [Suspect]
     Active Substance: ESKETAMINE
     Dosage: 84 MG, 2 TOTAL DOSES
     Dates: start: 20210816, end: 20210823
  9. SPRAVATO [Suspect]
     Active Substance: ESKETAMINE
     Dosage: 56 MG, 1 TOTAL DOSES
     Dates: start: 20210830, end: 20210830
  10. SPRAVATO [Suspect]
     Active Substance: ESKETAMINE
     Dosage: 84 MG, 1 TOTAL DOSES
     Dates: start: 20210909, end: 20210909
  11. SPRAVATO [Suspect]
     Active Substance: ESKETAMINE
     Dosage: 56 MG, 13 TOTAL DOSES
     Dates: start: 20210913, end: 20211213
  12. SPRAVATO [Suspect]
     Active Substance: ESKETAMINE
     Dosage: 84 MG, 1 TOTAL DOSES
     Dates: start: 20211227, end: 20211227
  13. SPRAVATO [Suspect]
     Active Substance: ESKETAMINE
     Dosage: 56 MG, 3 TOTAL DOSES
     Dates: start: 20220110, end: 20220301
  14. SPRAVATO [Suspect]
     Active Substance: ESKETAMINE
     Dosage: 84 MG, 2 TOTAL DOSES
     Dates: start: 20220307, end: 20220314
  15. SPRAVATO [Suspect]
     Active Substance: ESKETAMINE
     Dosage: 56 MG, 18 TOTAL DOSES
     Dates: start: 20220321, end: 20220726
  16. SPRAVATO [Suspect]
     Active Substance: ESKETAMINE
     Dosage: 84MG, 1 TOTAL DOSES
     Dates: start: 20220802, end: 20220802
  17. SPRAVATO [Suspect]
     Active Substance: ESKETAMINE
     Dosage: 56 MG,18 TOTAL DOSES
     Dates: start: 20220808, end: 20221205
  18. SPRAVATO [Suspect]
     Active Substance: ESKETAMINE
     Dosage: 84 MG, 1 TOTAL DOSES
     Dates: start: 20221212, end: 20221212
  19. SPRAVATO [Suspect]
     Active Substance: ESKETAMINE
     Dosage: 56 MG, 3 TOTAL DOSES
     Dates: start: 20221219, end: 20230109

REACTIONS (2)
  - Fall [Recovering/Resolving]
  - Shoulder operation [Recovering/Resolving]
